FAERS Safety Report 8867283 (Version 1)
Quarter: 2012Q4

REPORT INFORMATION
  Report Type: 
  Country: US (occurrence: US)
  Receive Date: 20121025
  Receipt Date: 20121025
  Transmission Date: 20130627
  Serious: No
  Sender: FDA-Public Use
  Company Number: US-AMGEN-USASP2012015909

PATIENT
  Sex: Female
  Weight: 82.54 kg

DRUGS (22)
  1. ENBREL [Suspect]
     Indication: PRODUCT USED FOR UNKNOWN INDICATION
     Dosage: 50 mg, qwk
  2. RELAFEN [Concomitant]
     Dosage: 750 mg, UNK
  3. ACIPHEX [Concomitant]
     Dosage: 20 mg, UNK
  4. SYNTHROID [Concomitant]
     Dosage: 137 mug, UNK
  5. PAXIL [Concomitant]
     Dosage: 10 mg, UNK
  6. ACYCLOVIR                          /00587301/ [Concomitant]
  7. TRAVATAN Z [Concomitant]
  8. ALPHAGAN P [Concomitant]
  9. ALPRAZOLAM [Concomitant]
     Dosage: 1 mg, UNK
  10. RESTASIS [Concomitant]
  11. HYDROCHLOROTH [Concomitant]
     Dosage: 25 mg, UNK
  12. PULMICORT [Concomitant]
     Dosage: 200 mug, UNK
  13. POTASSIUM [Concomitant]
     Dosage: 75 mg, UNK
  14. PROAIR HFA [Concomitant]
  15. FLEXERIL                           /00428402/ [Concomitant]
     Dosage: 10 mg, UNK
  16. NASONEX [Concomitant]
  17. ALBUTEROL                          /00139501/ [Concomitant]
     Dosage: 0.083 %, UNK
  18. OMEGA 3                            /01334101/ [Concomitant]
     Dosage: 1000 mg, UNK
  19. CALCIUM CITRATE [Concomitant]
     Dosage: 1040 mg, UNK
  20. LYSINE [Concomitant]
     Dosage: 1000 mg, UNK
  21. VITAMIN D /00107901/ [Concomitant]
     Dosage: 400 IU, UNK
  22. BENADRYL                           /00000402/ [Concomitant]
     Dosage: 25 mg, UNK

REACTIONS (1)
  - Rash [Unknown]
